FAERS Safety Report 9748385 (Version 1)
Quarter: 2013Q4

REPORT INFORMATION
  Report Type: Spontaneous
  Country: GB (occurrence: GB)
  Receive Date: 20131212
  Receipt Date: 20131212
  Transmission Date: 20140711
  Serious: Yes (Life-Threatening, Hospitalization, Disabling)
  Sender: FDA-Public Use
  Company Number: GB-DRREDDYS-GER/UKI/13/0036280

PATIENT
  Age: 49 Year
  Sex: Male
  Weight: 65.31 kg

DRUGS (2)
  1. FLUOXETINE [Suspect]
     Indication: ANXIETY
     Route: 048
     Dates: start: 20130613, end: 20130704
  2. FLUOXETINE [Suspect]
     Indication: STRESS AT WORK

REACTIONS (9)
  - Impulsive behaviour [Recovered/Resolved with Sequelae]
  - Apathy [Recovered/Resolved]
  - Muscle tightness [Recovered/Resolved]
  - Intentional overdose [Unknown]
  - Hypersomnia [Recovered/Resolved]
  - Somnolence [Recovered/Resolved]
  - Suicidal ideation [Unknown]
  - Suicide attempt [Recovered/Resolved with Sequelae]
  - Social avoidant behaviour [Unknown]
